FAERS Safety Report 9123761 (Version 1)
Quarter: 2013Q1

REPORT INFORMATION
  Report Type: Spontaneous
  Country: US (occurrence: US)
  Receive Date: 20130227
  Receipt Date: 20130227
  Transmission Date: 20140127
  Serious: No
  Sender: FDA-Public Use
  Company Number: US-BAYER-2013-023073

PATIENT
  Age: 80 Year
  Sex: Female
  Weight: 68 kg

DRUGS (2)
  1. ALEVE CAPLET/TABLET,MIDOL EXTENDED RELIEF CAPLET [Suspect]
     Indication: BACK PAIN
     Dosage: 2 DF, BID
     Route: 048
     Dates: start: 2011, end: 20130211
  2. ALEVE CAPLET/TABLET,MIDOL EXTENDED RELIEF CAPLET [Suspect]
     Indication: BACK PAIN
     Dosage: 4 DF, UNK

REACTIONS (3)
  - Drug ineffective [None]
  - Incorrect drug administration duration [None]
  - Overdose [None]
